FAERS Safety Report 15328567 (Version 4)
Quarter: 2019Q2

REPORT INFORMATION
  Report Type: Spontaneous
  Country: GB (occurrence: GB)
  Receive Date: 20180829
  Receipt Date: 20190410
  Transmission Date: 20190711
  Serious: Yes (Hospitalization)
  Sender: FDA-Public Use
  Company Number: GB-BIOGEN-2018BI00626273

PATIENT
  Sex: Female

DRUGS (1)
  1. PLEGRIDY [Suspect]
     Active Substance: PEGINTERFERON BETA-1A
     Indication: RELAPSING-REMITTING MULTIPLE SCLEROSIS
     Dosage: 125MCG/0.5ML
     Route: 050
     Dates: start: 20170111

REACTIONS (3)
  - Joint injury [Unknown]
  - Fall [Recovered/Resolved]
  - Injection site reaction [Recovered/Resolved]
